FAERS Safety Report 6541673-7 (Version None)
Quarter: 2010Q1

REPORT INFORMATION
  Report Type: 
  Country: None (occurrence: None)
  Receive Date: 20100119
  Receipt Date: 20100111
  Transmission Date: 20100710
  Serious: Yes (Other)
  Sender: FDA-Public Use
  Company Number: FR-ASTRAZENECA-2010SE01267

PATIENT
  Age: 19722 Day
  Sex: Female

DRUGS (11)
  1. NEXIUM [Suspect]
     Route: 048
     Dates: start: 20090101, end: 20090101
  2. RIVOTRIL [Suspect]
     Indication: PAIN
     Route: 048
     Dates: start: 20090222, end: 20090222
  3. NEURONTIN [Suspect]
     Indication: PAIN
     Route: 048
     Dates: start: 20090101, end: 20090101
  4. LEXOMIL [Suspect]
     Route: 048
     Dates: start: 20090101
  5. COLTRAMYL [Suspect]
     Route: 048
     Dates: start: 20090101
  6. TOPALGIC [Suspect]
     Indication: PAIN
     Route: 048
     Dates: start: 20090101, end: 20090101
  7. ACTISKENAN [Suspect]
     Indication: PAIN
     Route: 048
     Dates: start: 20090101, end: 20090101
  8. NOCTRAN [Suspect]
     Route: 048
     Dates: start: 20090101, end: 20090101
  9. CELESTAMINE TAB [Concomitant]
     Route: 065
  10. VIROGESTAN [Concomitant]
     Route: 065
  11. BIPROFENID [Concomitant]
     Route: 065

REACTIONS (2)
  - BALANCE DISORDER [None]
  - FALL [None]
